FAERS Safety Report 8998894 (Version 2)
Quarter: 2013Q1

REPORT INFORMATION
  Report Type: Spontaneous
  Country: US (occurrence: US)
  Receive Date: 20130103
  Receipt Date: 20130118
  Transmission Date: 20140127
  Serious: No
  Sender: FDA-Public Use
  Company Number: US-PFIZER INC-2013001355

PATIENT
  Age: 67 Year
  Sex: 0

DRUGS (1)
  1. ESTRING [Suspect]
     Dosage: UNK

REACTIONS (1)
  - Burning sensation [Unknown]
